FAERS Safety Report 9440728 (Version 3)
Quarter: 2013Q4

REPORT INFORMATION
  Report Type: Spontaneous
  Country: US (occurrence: US)
  Receive Date: 20130805
  Receipt Date: 20131022
  Transmission Date: 20140711
  Serious: Yes (Hospitalization)
  Sender: FDA-Public Use
  Company Number: US-JNJFOC-20130719195

PATIENT
  Age: 85 Year
  Sex: Male
  Weight: 56.7 kg

DRUGS (13)
  1. SIMPONI [Suspect]
     Indication: COLITIS ULCERATIVE
     Route: 058
     Dates: start: 201307, end: 201307
  2. BALSALAZIDE SODIUM [Concomitant]
     Route: 065
  3. PREDNISONE [Concomitant]
     Route: 065
  4. POTASSIUM [Concomitant]
     Route: 065
  5. ISOSORBIDE [Concomitant]
     Route: 065
  6. METOPROLOL [Concomitant]
     Route: 065
  7. SPIRONOLACTONE [Concomitant]
     Route: 065
  8. WARFARIN SODIUM [Concomitant]
     Route: 065
  9. BUMETANIDE [Concomitant]
     Route: 065
  10. HUMALOG [Concomitant]
     Route: 065
  11. LANTUS [Concomitant]
     Route: 065
  12. DIGOXIN [Concomitant]
     Route: 065
  13. OMEPRAZOLE [Concomitant]
     Route: 065

REACTIONS (3)
  - Atrial fibrillation [Recovered/Resolved]
  - Pneumonia [Recovered/Resolved]
  - Herpes zoster [Unknown]
